FAERS Safety Report 6030785-2 (Version None)
Quarter: 2009Q1

REPORT INFORMATION
  Report Type: 
  Country: None (occurrence: None)
  Receive Date: 20090107
  Receipt Date: 20090105
  Transmission Date: 20090719
  Serious: Yes (Other)
  Sender: FDA-Public Use
  Company Number: PHEH2009US00449

PATIENT
  Sex: Male

DRUGS (2)
  1. ELIDEL [Suspect]
     Indication: ECZEMA
     Dosage: UNK
     Route: 061
     Dates: start: 20040101
  2. PROTOPIC [Suspect]
     Indication: ECZEMA
     Dosage: UNK
     Route: 061
     Dates: start: 20040101

REACTIONS (1)
  - NON-HODGKIN'S LYMPHOMA [None]
